FAERS Safety Report 24102781 (Version 3)
Quarter: 2024Q4

REPORT INFORMATION
  Report Type: Report from Study
  Country: US (occurrence: US)
  Receive Date: 20240717
  Receipt Date: 20241225
  Transmission Date: 20250115
  Serious: Yes (Hospitalization, Other)
  Sender: ROCHE
  Company Number: US-ROCHE-10000022992

PATIENT
  Age: 77 Year
  Sex: Male

DRUGS (13)
  1. ESBRIET [Suspect]
     Active Substance: PIRFENIDONE
     Indication: Idiopathic pulmonary fibrosis
     Dosage: TAKE 3 TABLET(S) BY MOUTH 3 TIMES A DAY
     Route: 048
  2. XANAX [Concomitant]
     Active Substance: ALPRAZOLAM
     Dosage: 1 DF ORAL 1 - 12 HRS  AS NEEDED
     Route: 048
  3. ASPIRIN [Concomitant]
     Active Substance: ASPIRIN
     Dosage: 81 MG ORAL DAILY
     Route: 048
  4. LIPITOR [Concomitant]
     Active Substance: ATORVASTATIN CALCIUM
     Dosage: 1 DF BY MOUTH DAILY
     Route: 048
  5. BUPROPION HYDROCHLORIDE [Concomitant]
     Active Substance: BUPROPION HYDROCHLORIDE
     Dosage: 12 HRS TABLET - 1 DF BY MOUTH 2 TIMES A DAY
     Route: 048
  6. VITAMIN D3 [Concomitant]
     Active Substance: CHOLECALCIFEROL
     Dosage: 1000 UNIT CAPSULE BY MOUTH DAILY
     Route: 048
  7. VITAMIN B12 [Concomitant]
     Active Substance: CYANOCOBALAMIN
     Dosage: 1000 MCG BY MOUTH DAILY
     Route: 048
  8. PROZAC [Concomitant]
     Active Substance: FLUOXETINE HYDROCHLORIDE
     Dosage: CAPSULE TAKE 1 CAPSULE 20 MG 90 CAPSULE TOTAL BY MOUTH DAILY
     Route: 048
  9. IMODIUM [Concomitant]
     Active Substance: LOPERAMIDE HYDROCHLORIDE
     Indication: Diarrhoea
     Dosage: 2 MG CAPSULE BY MOUTH AS NEEDED FOR
     Route: 048
  10. LORATADINE [Concomitant]
     Active Substance: LORATADINE
     Dosage: 10 MG TABLET BY MOUTH DAILY AS NEEDED
     Route: 048
  11. SUMATRIPTAN [Concomitant]
     Active Substance: SUMATRIPTAN
     Indication: Migraine
     Dosage: 100 MG 1 TABLET BY MOUTH ONCE AS NEEDED FOR MIGRAINE FOR UP TO 1 DOSE. MAY REPEAT IN 2 HOURS IF UNRE
  12. ALBUTEROL [Concomitant]
     Active Substance: ALBUTEROL
     Dosage: 90 MCG/ ACTUATION INHALER 2 PUFFS EVERY 6 HOURS AS NEEDED FOR WHEEZING PATIENTS NOT TAKING ON REPORT
  13. ATROVENT [Concomitant]
     Active Substance: IPRATROPIUM BROMIDE
     Dosage: NASAL SPRAY ADMINISTER 2 SPRAYS INTO EACH NOSTRIL 3 TIMES A DAY ( PATIENT NOT TAKING REPORTED ON 08/

REACTIONS (11)
  - Cardiac failure [Unknown]
  - Pulmonary fibrosis [Unknown]
  - Hypertension [Unknown]
  - Dyspnoea [Unknown]
  - Peripheral swelling [Unknown]
  - Productive cough [Unknown]
  - Fatigue [Unknown]
  - Blood pressure abnormal [Unknown]
  - Acute respiratory failure [Unknown]
  - Cardiomyopathy [Unknown]
  - Cardiac failure congestive [Unknown]
